FAERS Safety Report 6088644-5 (Version None)
Quarter: 2009Q1

REPORT INFORMATION
  Report Type: 
  Country: None (occurrence: None)
  Receive Date: 20090224
  Receipt Date: 20090212
  Transmission Date: 20090719
  Serious: Yes (Other)
  Sender: FDA-Public Use
  Company Number: US-ROCHE-463439

PATIENT
  Age: 83 Year
  Sex: Female

DRUGS (2)
  1. BONIVA [Suspect]
     Indication: OSTEOPOROSIS
     Dosage: FORM: PILL
     Route: 048
     Dates: start: 20051001
  2. BONIVA [Suspect]
     Dosage: FORM: PILL
     Route: 048
     Dates: start: 20080103

REACTIONS (5)
  - ABDOMINAL DISCOMFORT [None]
  - CARDIAC DISORDER [None]
  - DIZZINESS [None]
  - FALL [None]
  - HIP FRACTURE [None]
